FAERS Safety Report 15427177 (Version 1)
Quarter: 2018Q3

REPORT INFORMATION
  Report Type: Spontaneous
  Country: US (occurrence: US)
  Receive Date: 20180925
  Receipt Date: 20180925
  Transmission Date: 20181010
  Serious: No
  Sender: FDA-Public Use
  Company Number: US-INDIVIOR LIMITED-INDV-110495-2018

PATIENT
  Age: 26 Year
  Sex: Male

DRUGS (3)
  1. SUBOXONE [Suspect]
     Active Substance: BUPRENORPHINE HYDROCHLORIDE\NALOXONE HYDROCHLORIDE
     Indication: DRUG DEPENDENCE
     Dosage: 8MG, PER DAY
     Route: 060
     Dates: start: 2012, end: 2012
  2. SUBOXONE [Suspect]
     Active Substance: BUPRENORPHINE HYDROCHLORIDE\NALOXONE HYDROCHLORIDE
     Indication: DRUG DEPENDENCE
     Dosage: CUTTING AND NOW DOWN TO 1/16TH OF A FILM
     Route: 065
  3. MARIJUANA [Suspect]
     Active Substance: CANNABIS SATIVA SUBSP. INDICA TOP
     Indication: PRODUCT USED FOR UNKNOWN INDICATION
     Dosage: UNK
     Route: 065

REACTIONS (9)
  - Wrong technique in product usage process [Not Recovered/Not Resolved]
  - Drug withdrawal syndrome [Not Recovered/Not Resolved]
  - Drug abuse [Unknown]
  - Lethargy [Not Recovered/Not Resolved]
  - Loss of personal independence in daily activities [Not Recovered/Not Resolved]
  - Asthenia [Not Recovered/Not Resolved]
  - Intentional underdose [Not Recovered/Not Resolved]
  - Drug dependence [Not Recovered/Not Resolved]
  - Drug screen positive [Unknown]

NARRATIVE: CASE EVENT DATE: 2012
